FAERS Safety Report 4690682-1 (Version None)
Quarter: 2005Q2

REPORT INFORMATION
  Report Type: 
  Country: None (occurrence: None)
  Receive Date: 20050614
  Receipt Date: 20050614
  Transmission Date: 20051028
  Serious: Yes (Other)
  Sender: FDA-Public Use
  Company Number: None

PATIENT
  Sex: Male
  Weight: 53.7 kg

DRUGS (7)
  1. VINCRISTINE [Suspect]
     Indication: ACUTE LYMPHOCYTIC LEUKAEMIA
     Dosage: 2 MG (1,5 MG/M2) 05/09/2005, 05/19/2005, 05/26/2005, 06/02/2005
     Dates: start: 20050509
  2. DAUNORUBICIN [Suspect]
     Dosage: 39 MG (25 MG/M2) 05/09/2005, 05/19/2005, 05/26/2005, 06/02/2005
  3. PEG-ASPARAGINASE [Suspect]
     Dosage: 3900U (2500U/M2/DOSE) 05/12/2005
  4. METHOTREXATE [Suspect]
     Dosage: IT 15 MG 05/26/2005
     Route: 037
  5. CYTARABINE [Suspect]
     Dosage: IT 70 MG 05/09/2005
     Route: 037
  6. TRIMETHOPRIM-SULPHAMETHOXAZOLE [Concomitant]
  7. RISPERIDONUM [Concomitant]

REACTIONS (2)
  - GLUCOSE TOLERANCE IMPAIRED [None]
  - HEADACHE [None]
